FAERS Safety Report 10700921 (Version 1)
Quarter: 2015Q1

REPORT INFORMATION
  Report Type: Spontaneous
  Country: US (occurrence: US)
  Receive Date: 20150109
  Receipt Date: 20150109
  Transmission Date: 20150721
  Serious: Yes (Other)
  Sender: FDA-Public Use
  Company Number: US-ACTAVIS-2014-27960

PATIENT
  Sex: Male

DRUGS (1)
  1. MECLIZINE HYDROCHLORIDE (WATSON LABORATORIES) [Suspect]
     Active Substance: MECLIZINE HYDROCHLORIDE
     Indication: PRODUCT USED FOR UNKNOWN INDICATION
     Dosage: UNK UNK, UNKNOWN
     Route: 064

REACTIONS (3)
  - Cerebral palsy [Unknown]
  - Cerebrovascular accident [Unknown]
  - Seizure [Unknown]
